FAERS Safety Report 17203296 (Version 1)
Quarter: 2019Q4

REPORT INFORMATION
  Report Type: Spontaneous
  Country: US (occurrence: US)
  Receive Date: 20191226
  Receipt Date: 20191226
  Transmission Date: 20200122
  Serious: No
  Sender: FDA-Public Use
  Company Number: US-UPSHER-SMITH LABORATORIES, LLC-2019USL00290

PATIENT
  Sex: Female
  Weight: 68.03 kg

DRUGS (5)
  1. POTASSIUM CHLORIDE MICRO-DISPERSIBLE [Suspect]
     Active Substance: POTASSIUM CHLORIDE
     Indication: CARDIAC DISORDER
     Dosage: 20 MEQ, 2X/DAY
     Route: 048
     Dates: start: 201901, end: 20190315
  2. POTASSIUM CHLORIDE MICRO-DISPERSIBLE [Suspect]
     Active Substance: POTASSIUM CHLORIDE
     Dosage: 40 MEQ
     Route: 048
     Dates: start: 20190315
  3. UNSPECIFIED WATER PILL [Concomitant]
     Active Substance: UNSPECIFIED INGREDIENT
  4. UNSPECIFIED OTHER MEDICATIONS [Concomitant]
     Active Substance: UNSPECIFIED INGREDIENT
  5. POTASSIUM CHLORIDE MICRO-DISPERSIBLE [Suspect]
     Active Substance: POTASSIUM CHLORIDE
     Dosage: 20 MEQ, 2X/DAY
     Route: 048
     Dates: start: 2000, end: 201901

REACTIONS (9)
  - Cardiac disorder [Unknown]
  - Joint swelling [Not Recovered/Not Resolved]
  - Malaise [Not Recovered/Not Resolved]
  - Gait disturbance [Recovered/Resolved]
  - Peripheral venous disease [Not Recovered/Not Resolved]
  - Weight increased [Recovered/Resolved]
  - Nausea [Not Recovered/Not Resolved]
  - Fall [Recovered/Resolved]
  - Fluid retention [Recovering/Resolving]

NARRATIVE: CASE EVENT DATE: 2019
